FAERS Safety Report 24911512 (Version 1)
Quarter: 2025Q1

REPORT INFORMATION
  Report Type: Spontaneous
  Country: FR (occurrence: FR)
  Receive Date: 20250131
  Receipt Date: 20250131
  Transmission Date: 20250408
  Serious: Yes (Hospitalization, Other)
  Sender: FERRING
  Company Number: FR-FERRINGPH-2024FE07020

PATIENT

DRUGS (1)
  1. DINOPROSTONE [Suspect]
     Active Substance: DINOPROSTONE
     Indication: Labour induction
     Dosage: 1 DOSAGE FORM, ONCE/SINGLE
     Route: 064
     Dates: start: 20240919, end: 20240920

REACTIONS (2)
  - Hypoxic ischaemic encephalopathy neonatal [Recovered/Resolved]
  - Bradycardia foetal [Recovered/Resolved]

NARRATIVE: CASE EVENT DATE: 20240920
